FAERS Safety Report 6132948-4 (Version None)
Quarter: 2009Q1

REPORT INFORMATION
  Report Type: 
  Country: None (occurrence: None)
  Receive Date: 20090326
  Receipt Date: 20090317
  Transmission Date: 20090719
  Serious: Yes (Other)
  Sender: FDA-Public Use
  Company Number: PHHY2009SE10024

PATIENT
  Sex: Male

DRUGS (1)
  1. RITALIN [Suspect]
     Dosage: 110 MG, QD

REACTIONS (4)
  - DRUG INEFFECTIVE [None]
  - GASTRIC BYPASS [None]
  - GASTRIC DISORDER [None]
  - INTENTIONAL DRUG MISUSE [None]
